FAERS Safety Report 9251137 (Version 1)
Quarter: 2013Q2

REPORT INFORMATION
  Report Type: Spontaneous
  Country: US (occurrence: US)
  Receive Date: 20130424
  Receipt Date: 20130424
  Transmission Date: 20140414
  Serious: Yes (Other)
  Sender: FDA-Public Use
  Company Number: US-PFIZER INC-2013126443

PATIENT
  Sex: Male

DRUGS (4)
  1. LYRICA [Suspect]
     Indication: BACK PAIN
     Dosage: UNK
     Dates: start: 201204
  2. LORCET [Suspect]
     Indication: BACK PAIN
     Dosage: UNK
     Dates: start: 2008
  3. MORPHINE [Concomitant]
     Indication: BACK PAIN
     Dosage: UNK
  4. OXYCONTIN [Concomitant]
     Indication: BACK PAIN
     Dosage: UNK

REACTIONS (3)
  - Drug dependence [Unknown]
  - Drug abuse [Unknown]
  - Tobacco user [Unknown]
